FAERS Safety Report 7123738-4 (Version None)
Quarter: 2010Q4

REPORT INFORMATION
  Report Type: 
  Country: None (occurrence: None)
  Receive Date: 20101125
  Receipt Date: 20101118
  Transmission Date: 20110411
  Serious: Yes (Death, Hospitalization, Other)
  Sender: FDA-Public Use
  Company Number: US-ELI_LILLY_AND_COMPANY-US201011005889

PATIENT
  Age: 50 Year
  Sex: Male

DRUGS (1)
  1. XIGRIS [Suspect]

REACTIONS (2)
  - DEATH [None]
  - PLATELET COUNT DECREASED [None]
